APPROVED DRUG PRODUCT: OXALIPLATIN
Active Ingredient: OXALIPLATIN
Strength: 100MG/VIAL
Dosage Form/Route: INJECTABLE;INTRAVENOUS
Application: A200979 | Product #002
Applicant: PHARMOBEDIENT CONSULTING LLC
Approved: Aug 8, 2012 | RLD: No | RS: No | Type: DISCN